FAERS Safety Report 4826150-3 (Version None)
Quarter: 2005Q4

REPORT INFORMATION
  Report Type: 
  Country: None (occurrence: None)
  Receive Date: 20051111
  Receipt Date: 20051110
  Transmission Date: 20060501
  Serious: Yes (Other)
  Sender: FDA-Public Use
  Company Number: US-GLAXOSMITHKLINE-A0581730A

PATIENT
  Age: 55 Year
  Sex: Male

DRUGS (3)
  1. GOODY'S EXTRA STRENGTH HEADACHE POWDER [Suspect]
     Route: 048
     Dates: start: 19950101
  2. PREDNISONE [Concomitant]
     Indication: LUNG INFECTION
  3. ANTIBIOTIC [Concomitant]
     Indication: BRONCHITIS

REACTIONS (11)
  - BLOOD PRESSURE FLUCTUATION [None]
  - DEPENDENCE [None]
  - FEELING HOT [None]
  - HEPATIC ENZYME INCREASED [None]
  - HYPERHIDROSIS [None]
  - INAPPROPRIATE SCHEDULE OF DRUG ADMINISTRATION [None]
  - INSOMNIA [None]
  - OEDEMA PERIPHERAL [None]
  - SWELLING FACE [None]
  - TOOTHACHE [None]
  - TREMOR [None]
